FAERS Safety Report 14068017 (Version 1)
Quarter: 2017Q4

REPORT INFORMATION
  Report Type: Spontaneous
  Country: US (occurrence: US)
  Receive Date: 20171009
  Receipt Date: 20171009
  Transmission Date: 20180321
  Serious: Yes (Hospitalization)
  Sender: FDA-Public Use
  Company Number: None

PATIENT
  Age: 26 Year
  Sex: Female

DRUGS (1)
  1. FLUCONAZOLE. [Suspect]
     Active Substance: FLUCONAZOLE
     Route: 048
     Dates: start: 20171007, end: 20171007

REACTIONS (3)
  - Pruritus [None]
  - Rash [None]
  - Swelling face [None]

NARRATIVE: CASE EVENT DATE: 20171008
